FAERS Safety Report 7823131 (Version 2)
Quarter: 2012Q4

REPORT INFORMATION
  Report Type: 
  Country: US (occurrence: US)
  Receive Date: 20110223
  Receipt Date: 20121019
  Transmission Date: 20130627
  Serious: Yes (Other)
  Sender: FDA-Public Use
  Company Number: US-ROCHE-734325

PATIENT
  Age: 27 None
  Sex: Female
  Weight: 46.7 kg

DRUGS (1)
  1. ACCUTANE [Suspect]
     Indication: ACNE
     Route: 065
     Dates: start: 1989, end: 1990

REACTIONS (12)
  - Crohn^s disease [Unknown]
  - Depression [Unknown]
  - Suicidal ideation [Unknown]
  - Gastrointestinal injury [Unknown]
  - Inflammatory bowel disease [Unknown]
  - Colitis ulcerative [Unknown]
  - Intestinal obstruction [Unknown]
  - Rectal fissure [Unknown]
  - Anal abscess [Unknown]
  - Anal fistula [Unknown]
  - Oral herpes [Unknown]
  - Rheumatoid arthritis [Unknown]
